FAERS Safety Report 21470867 (Version 1)
Quarter: 2022Q4

REPORT INFORMATION
  Report Type: Spontaneous
  Country: CN (occurrence: CN)
  Receive Date: 20221018
  Receipt Date: 20221018
  Transmission Date: 20230112
  Serious: Yes (Other)
  Sender: FDA-Public Use
  Company Number: CN-ASTELLAS-2022US036677

PATIENT
  Age: 75 Year
  Sex: Female

DRUGS (8)
  1. XOSPATA [Suspect]
     Active Substance: GILTERITINIB
     Indication: Acute myeloid leukaemia
     Route: 048
     Dates: start: 202109, end: 2021
  2. XOSPATA [Suspect]
     Active Substance: GILTERITINIB
     Route: 048
     Dates: start: 202111, end: 2021
  3. XOSPATA [Suspect]
     Active Substance: GILTERITINIB
     Dosage: UNK, UNKNOWN FREQ.
     Route: 048
     Dates: start: 202206
  4. XOSPATA [Suspect]
     Active Substance: GILTERITINIB
     Dosage: ONE TABLET ON ODD NUMBERED DAYS AND TWO TABLETS ON EVEN NUMBERED DAYS.
     Route: 048
     Dates: start: 202208
  5. AZACITIDINE [Concomitant]
     Active Substance: AZACITIDINE
     Indication: Acute myeloid leukaemia
     Dosage: UNK, UNKNOWN FREQ.
     Route: 065
  6. VENETOCLAX [Concomitant]
     Active Substance: VENETOCLAX
     Indication: Acute myeloid leukaemia
     Dosage: UNK UNK, UNKNOWN FREQ.
     Route: 048
  7. VENETOCLAX [Concomitant]
     Active Substance: VENETOCLAX
     Route: 048
     Dates: start: 2021
  8. VORICONAZOLE [Concomitant]
     Active Substance: VORICONAZOLE
     Indication: Acute myeloid leukaemia
     Dosage: UNK UNK, UNKNOWN FREQ. (REPORTED AS EVERY DAY)
     Route: 065
     Dates: start: 202111

REACTIONS (5)
  - Thrombocytopenia [Unknown]
  - Anaemia [Unknown]
  - Oedema peripheral [Unknown]
  - Investigation abnormal [Recovering/Resolving]
  - Incorrect dose administered [Unknown]

NARRATIVE: CASE EVENT DATE: 20211101
